FAERS Safety Report 6725842-9 (Version None)
Quarter: 2010Q2

REPORT INFORMATION
  Report Type: 
  Country: None (occurrence: None)
  Receive Date: 20100514
  Receipt Date: 20100504
  Transmission Date: 20101027
  Serious: Yes (Hospitalization, Other)
  Sender: FDA-Public Use
  Company Number: PHHY2010SE28620

PATIENT
  Sex: Female

DRUGS (6)
  1. VOLTAREN [Suspect]
     Indication: DYSPEPSIA
     Dosage: UNK
     Route: 030
     Dates: start: 20091210, end: 20091210
  2. ATACAND [Concomitant]
     Route: 048
  3. CITALOPRAM [Concomitant]
  4. ALVEDON [Concomitant]
     Route: 048
  5. TROMBYL [Concomitant]
     Route: 048
  6. ATENOLOL [Concomitant]

REACTIONS (4)
  - ATRIAL FIBRILLATION [None]
  - RASH [None]
  - SINUS RHYTHM [None]
  - URTICARIA [None]
